FAERS Safety Report 7229321-4 (Version None)
Quarter: 2011Q1

REPORT INFORMATION
  Report Type: 
  Country: None (occurrence: None)
  Receive Date: 20110117
  Receipt Date: 20110111
  Transmission Date: 20110831
  Serious: Yes (Other)
  Sender: FDA-Public Use
  Company Number: FR-JNJFOC-20110102781

PATIENT
  Age: 31 Year
  Sex: Female

DRUGS (4)
  1. REMICADE [Suspect]
     Indication: CROHN'S DISEASE
     Route: 042
  2. REMICADE [Suspect]
     Route: 042
  3. REMICADE [Suspect]
     Dosage: 26TH DOSE
     Route: 042
  4. REMICADE [Suspect]
     Route: 042

REACTIONS (7)
  - CHEST DISCOMFORT [None]
  - HYPERSENSITIVITY [None]
  - PARAESTHESIA [None]
  - MALAISE [None]
  - DRUG INEFFECTIVE [None]
  - INFUSION RELATED REACTION [None]
  - RALES [None]
